FAERS Safety Report 20170665 (Version 1)
Quarter: 2021Q4

REPORT INFORMATION
  Report Type: Spontaneous
  Country: US (occurrence: None)
  Receive Date: 20211210
  Receipt Date: 20211210
  Transmission Date: 20220303
  Serious: Yes (Hospitalization)
  Sender: FDA-Public Use
  Company Number: None

PATIENT
  Sex: Male
  Weight: 73.3 kg

DRUGS (1)
  1. DULOXETINE HYDROCHLORIDE [Suspect]
     Active Substance: DULOXETINE HYDROCHLORIDE

REACTIONS (8)
  - Gram stain positive [None]
  - Blood culture positive [None]
  - Ejection fraction decreased [None]
  - Aortic valve incompetence [None]
  - Mitral valve thickening [None]
  - Endocarditis [None]
  - Mitral valve incompetence [None]
  - Aneurysm [None]

NARRATIVE: CASE EVENT DATE: 20211129
